FAERS Safety Report 7092482-4 (Version None)
Quarter: 2010Q4

REPORT INFORMATION
  Report Type: 
  Country: None (occurrence: None)
  Receive Date: 20101108
  Receipt Date: 20101108
  Transmission Date: 20110411
  Serious: No
  Sender: FDA-Public Use
  Company Number: None

PATIENT
  Age: 45 Year
  Sex: Male
  Weight: 78.9 kg

DRUGS (1)
  1. TRAZODONE HCL [Suspect]
     Indication: INSOMNIA
     Dosage: 200 MG PRN PO
     Route: 048
     Dates: start: 20100616, end: 20100922

REACTIONS (2)
  - ERECTION INCREASED [None]
  - LIBIDO INCREASED [None]
